FAERS Safety Report 24379649 (Version 1)
Quarter: 2024Q3

REPORT INFORMATION
  Report Type: Spontaneous
  Country: CN (occurrence: CN)
  Receive Date: 20240930
  Receipt Date: 20240930
  Transmission Date: 20241017
  Serious: Yes (Hospitalization, Other)
  Sender: BAXTER
  Company Number: None

PATIENT
  Age: 13 Year
  Sex: Male
  Weight: 54 kg

DRUGS (3)
  1. CYCLOPHOSPHAMIDE [Suspect]
     Active Substance: CYCLOPHOSPHAMIDE
     Indication: Rhabdomyosarcoma
     Dosage: 0.60 G, ONE TIME IN ONE DAY, DILUTED WITH 0.9% SODIUM CHLORIDE 250ML (ROUTE: WITHIN THE PUMP INJECTI
     Route: 050
     Dates: start: 20240901, end: 20240903
  2. CYCLOPHOSPHAMIDE [Suspect]
     Active Substance: CYCLOPHOSPHAMIDE
     Indication: Testis cancer
  3. SODIUM CHLORIDE [Suspect]
     Active Substance: SODIUM CHLORIDE
     Indication: Medication dilution
     Dosage: 0.9% 250ML, ONE TIME IN DAY, USED TO DILUTE CYCLOPHOSPHAMIDE 0.6G (ROUTE: WITHIN THE PUMP INJECTION)
     Route: 050
     Dates: start: 20240901, end: 20240903

REACTIONS (3)
  - Myelosuppression [Recovering/Resolving]
  - Mouth ulceration [Recovering/Resolving]
  - Mucosal erosion [Recovering/Resolving]

NARRATIVE: CASE EVENT DATE: 20240908
